FAERS Safety Report 20257577 (Version 3)
Quarter: 2022Q1

REPORT INFORMATION
  Report Type: Spontaneous
  Country: PL (occurrence: PL)
  Receive Date: 20211230
  Receipt Date: 20220323
  Transmission Date: 20220423
  Serious: Yes (Hospitalization, Other)
  Sender: FDA-Public Use
  Company Number: PL-AstraZeneca-2021A853758

PATIENT
  Age: 33 Year
  Sex: Male
  Weight: 88 kg

DRUGS (1)
  1. ANASTROZOLE [Suspect]
     Active Substance: ANASTROZOLE
     Indication: Product used for unknown indication
     Dosage: UNK

REACTIONS (4)
  - Cardiac failure acute [Unknown]
  - Acute kidney injury [Recovered/Resolved]
  - Cardiac hypertrophy [Unknown]
  - Hypertension [Unknown]
